FAERS Safety Report 10278161 (Version 2)
Quarter: 2014Q4

REPORT INFORMATION
  Report Type: Spontaneous
  Country: JP (occurrence: JP)
  Receive Date: 20140704
  Receipt Date: 20141027
  Transmission Date: 20150528
  Serious: Yes (Death, Other)
  Sender: FDA-Public Use
  Company Number: PHHY2014JP082031

PATIENT
  Age: 55 Year
  Sex: Male

DRUGS (1)
  1. SANDOSTATIN LAR DEPOT [Suspect]
     Active Substance: OCTREOTIDE ACETATE
     Indication: PANCREATIC NEUROENDOCRINE TUMOUR
     Dosage: 20 MG, QD
     Route: 030
     Dates: start: 201311

REACTIONS (9)
  - Colon cancer [Fatal]
  - Abdominal pain [Unknown]
  - Musculoskeletal pain [Unknown]
  - Malignant neoplasm progression [Fatal]
  - General physical health deterioration [Unknown]
  - Metastases to spine [Unknown]
  - Pain in extremity [Unknown]
  - Abdominal distension [Not Recovered/Not Resolved]
  - White blood cell count increased [Recovered/Resolved]

NARRATIVE: CASE EVENT DATE: 201312
